FAERS Safety Report 8661462 (Version 2)
Quarter: 2013Q2

REPORT INFORMATION
  Report Type: Spontaneous
  Country: US (occurrence: US)
  Receive Date: 20120712
  Receipt Date: 20130521
  Transmission Date: 20140414
  Serious: Yes (Other)
  Sender: FDA-Public Use
  Company Number: US-009507513-1206USA03896

PATIENT
  Age: 6 Year
  Sex: Male
  Weight: 19 kg

DRUGS (1)
  1. SINGULAIR [Suspect]
     Indication: RHINITIS ALLERGIC
     Dosage: 1 UNK, UNK
     Route: 048
     Dates: start: 20111031, end: 20120125

REACTIONS (17)
  - Abnormal behaviour [Unknown]
  - Aggression [Unknown]
  - Arthralgia [Unknown]
  - Crying [Unknown]
  - Feeling abnormal [Unknown]
  - Joint effusion [Unknown]
  - Mood swings [Unknown]
  - Nightmare [Unknown]
  - Pain in extremity [Unknown]
  - Self esteem decreased [Unknown]
  - Self injurious behaviour [Unknown]
  - Sleep apnoea syndrome [Unknown]
  - Suicidal ideation [Unknown]
  - Thyroid function test abnormal [Unknown]
  - Tremor [Unknown]
  - Vomiting [Unknown]
  - Weight bearing difficulty [Unknown]
